FAERS Safety Report 15735257 (Version 2)
Quarter: 2019Q1

REPORT INFORMATION
  Report Type: Spontaneous
  Country: US (occurrence: US)
  Receive Date: 20181218
  Receipt Date: 20190309
  Transmission Date: 20190417
  Serious: Yes (Other)
  Sender: FDA-Public Use
  Company Number: PHEH2018US053256

PATIENT
  Sex: Female

DRUGS (1)
  1. TASIGNA [Suspect]
     Active Substance: NILOTINIB
     Indication: CHRONIC MYELOID LEUKAEMIA
     Dosage: 300 MG, BID
     Route: 048
     Dates: start: 20151020, end: 201710

REACTIONS (10)
  - Hypertension [Unknown]
  - Arthralgia [Unknown]
  - Diabetes mellitus [Unknown]
  - Type 2 diabetes mellitus [Unknown]
  - Barrett^s oesophagus [Unknown]
  - Pain in extremity [Unknown]
  - Peripheral vascular disorder [Unknown]
  - Hyperlipidaemia [Unknown]
  - Peripheral arterial occlusive disease [Unknown]
  - Peripheral artery occlusion [Unknown]
